FAERS Safety Report 16356668 (Version 1)
Quarter: 2019Q2

REPORT INFORMATION
  Report Type: Report from Study
  Country: None (occurrence: US)
  Receive Date: 20190527
  Receipt Date: 20190527
  Transmission Date: 20190711
  Serious: Yes (Other)
  Sender: FDA-Public Use
  Company Number: US-ABBVIE-19S-163-2795903-00

PATIENT
  Age: 85 Year
  Sex: Male
  Weight: 74.91 kg

DRUGS (1)
  1. CREON [Suspect]
     Active Substance: PANCRELIPASE AMYLASE\PANCRELIPASE LIPASE\PANCRELIPASE PROTEASE
     Indication: PANCREATITIS CHRONIC
     Route: 048

REACTIONS (4)
  - Asthenia [Not Recovered/Not Resolved]
  - Abdominal distension [Not Recovered/Not Resolved]
  - Wheezing [Recovered/Resolved]
  - Dehydration [Recovering/Resolving]

NARRATIVE: CASE EVENT DATE: 201904
